FAERS Safety Report 12930394 (Version 1)
Quarter: 2016Q4

REPORT INFORMATION
  Report Type: Spontaneous
  Country: US (occurrence: US)
  Receive Date: 20161111
  Receipt Date: 20161111
  Transmission Date: 20170207
  Serious: No
  Sender: FDA-Public Use
  Company Number: None

PATIENT
  Age: 39 Year
  Sex: Female

DRUGS (10)
  1. ALPRAZOLAM. [Suspect]
     Active Substance: ALPRAZOLAM
  2. OMEPRAZOLE. [Suspect]
     Active Substance: OMEPRAZOLE
  3. TOPIRAMATE. [Suspect]
     Active Substance: TOPIRAMATE
  4. LATUDA [Suspect]
     Active Substance: LURASIDONE HYDROCHLORIDE
  5. CLOMIPRAMINE [Suspect]
     Active Substance: CLOMIPRAMINE
  6. MIRTAZAPINE. [Suspect]
     Active Substance: MIRTAZAPINE
  7. QUETIAPINE. [Suspect]
     Active Substance: QUETIAPINE
  8. METHADOSE [Suspect]
     Active Substance: METHADONE HYDROCHLORIDE
  9. AMANTADINE [Suspect]
     Active Substance: AMANTADINE
  10. GABAPENTIN. [Suspect]
     Active Substance: GABAPENTIN

REACTIONS (2)
  - Completed suicide [None]
  - Drug prescribing error [None]

NARRATIVE: CASE EVENT DATE: 2015
